FAERS Safety Report 10685350 (Version 2)
Quarter: 2015Q1

REPORT INFORMATION
  Report Type: Report from Study
  Country: US (occurrence: US)
  Receive Date: 20141231
  Receipt Date: 20150121
  Transmission Date: 20150720
  Serious: Yes (Other)
  Sender: FDA-Public Use
  Company Number: US-GLAXOSMITHKLINE-US2014044194

PATIENT
  Age: 61 Year
  Sex: Male
  Weight: 67.4 kg

DRUGS (3)
  1. PAZOPANIB FILM-COATED TABLET [Suspect]
     Active Substance: PAZOPANIB
     Indication: RENAL CELL CARCINOMA
     Dosage: 800 MG, QD
     Dates: start: 20140923
  2. MK-3475 SOLUTION FOR INFUSION [Suspect]
     Active Substance: PEMBROLIZUMAB
     Indication: RENAL CELL CARCINOMA
     Dosage: 2 MG/KG, CYC
     Route: 042
     Dates: start: 20140923
  3. PAZOPANIB FILM-COATED TABLET [Suspect]
     Active Substance: PAZOPANIB
     Dosage: 600 UNK, UNK
     Route: 048

REACTIONS (1)
  - Alanine aminotransferase increased [Recovered/Resolved]

NARRATIVE: CASE EVENT DATE: 20141223
